FAERS Safety Report 11443432 (Version 1)
Quarter: 2015Q3

REPORT INFORMATION
  Report Type: Report from Study
  Country: US (occurrence: US)
  Receive Date: 20150901
  Receipt Date: 20150901
  Transmission Date: 20151125
  Serious: No
  Sender: FDA-Public Use
  Company Number: US-AMGEN-USASL2015087886

PATIENT
  Age: 49 Year
  Sex: Male

DRUGS (1)
  1. ENBREL [Suspect]
     Active Substance: ETANERCEPT
     Indication: RHEUMATOID ARTHRITIS
     Dosage: 50 MG, QWK
     Route: 065

REACTIONS (5)
  - Condition aggravated [Recovered/Resolved]
  - Sinusitis [Unknown]
  - Visual impairment [Recovered/Resolved]
  - Hypersensitivity [Unknown]
  - Vision blurred [Recovered/Resolved]

NARRATIVE: CASE EVENT DATE: 201504
